FAERS Safety Report 21436143 (Version 1)
Quarter: 2022Q4

REPORT INFORMATION
  Report Type: Spontaneous
  Country: CN (occurrence: CN)
  Receive Date: 20221010
  Receipt Date: 20221010
  Transmission Date: 20230112
  Serious: Yes (Hospitalization, Other)
  Sender: FDA-Public Use
  Company Number: None

PATIENT
  Age: 45 Year
  Sex: Female
  Weight: 61 kg

DRUGS (8)
  1. CYCLOPHOSPHAMIDE [Suspect]
     Active Substance: CYCLOPHOSPHAMIDE
     Indication: Invasive breast carcinoma
     Dosage: 900 MG, QD (FOR 2 HOURS), DILUTED WITH 0.9% SODIUM CHLORIDE (500 ML), AC ADJUVANT CHEMOTHERAPY
     Route: 041
     Dates: start: 20220914, end: 20220914
  2. CYCLOPHOSPHAMIDE [Suspect]
     Active Substance: CYCLOPHOSPHAMIDE
     Indication: Breast cancer stage II
  3. CYCLOPHOSPHAMIDE [Suspect]
     Active Substance: CYCLOPHOSPHAMIDE
     Indication: Triple negative breast cancer
  4. PIRARUBICIN HYDROCHLORIDE [Suspect]
     Active Substance: PIRARUBICIN HYDROCHLORIDE
     Indication: Invasive breast carcinoma
     Dosage: 70 MG, QD (FOR 30 MIN-1 H), DILUTED WITH 5% GLUCOSE (250 ML), AC ADJUVANT CHEMOTHERAPY
     Route: 041
     Dates: start: 20220914, end: 20220914
  5. PIRARUBICIN HYDROCHLORIDE [Suspect]
     Active Substance: PIRARUBICIN HYDROCHLORIDE
     Indication: Breast cancer stage II
  6. PIRARUBICIN HYDROCHLORIDE [Suspect]
     Active Substance: PIRARUBICIN HYDROCHLORIDE
     Indication: Triple negative breast cancer
  7. SODIUM CHLORIDE [Suspect]
     Active Substance: SODIUM CHLORIDE
     Indication: Vehicle solution use
     Dosage: 500 ML, QD (FOR 2 HOURS), DILUTED IN CYCLOPHOSPHAMIDE (900 MG), AC ADJUVANT CHEMOTHERAPY
     Route: 041
     Dates: start: 20220914, end: 20220914
  8. DEXTROSE [Suspect]
     Active Substance: DEXTROSE
     Indication: Vehicle solution use
     Dosage: 250 ML, QD (FOR 30 MIN-1 H), DILUTED IN PIRARUBICIN HYDROCHLORIDE (70 MG)
     Route: 041
     Dates: start: 20220914, end: 20220914

REACTIONS (3)
  - Jugular vein thrombosis [Unknown]
  - White blood cell count decreased [Recovered/Resolved]
  - Neutrophil count decreased [Recovered/Resolved]

NARRATIVE: CASE EVENT DATE: 20220921
